FAERS Safety Report 20771075 (Version 2)
Quarter: 2022Q2

REPORT INFORMATION
  Report Type: Spontaneous
  Country: GB (occurrence: GB)
  Receive Date: 20220429
  Receipt Date: 20220524
  Transmission Date: 20220720
  Serious: Yes (Death, Other)
  Sender: FDA-Public Use
  Company Number: None

PATIENT
  Sex: Female

DRUGS (1)
  1. RITUXIMAB [Suspect]
     Active Substance: RITUXIMAB
     Indication: Follicular lymphoma
     Dosage: UNK

REACTIONS (5)
  - Therapeutic drug monitoring analysis not performed [Fatal]
  - Hepatic cirrhosis [Fatal]
  - Immunosuppression [Fatal]
  - Hepatitis B reactivation [Fatal]
  - Hepatitis [Fatal]
